FAERS Safety Report 15111658 (Version 1)
Quarter: 2018Q3

REPORT INFORMATION
  Report Type: Spontaneous
  Country: IT (occurrence: IT)
  Receive Date: 20180705
  Receipt Date: 20180705
  Transmission Date: 20181010
  Serious: Yes (Hospitalization, Other)
  Sender: FDA-Public Use
  Company Number: IT-NEOS THERAPEUTICS, LP-2018NEO00082

PATIENT
  Age: 30 Year
  Sex: Male

DRUGS (8)
  1. DICLAZEPAM [Concomitant]
     Active Substance: 2-CHLORODIAZEPAM
     Route: 065
  2. METHYLPHENIDATE. [Suspect]
     Active Substance: METHYLPHENIDATE
     Route: 065
  3. METHYLONE [Concomitant]
     Active Substance: METHYLPREDNISOLONE
     Route: 065
  4. 4?FLUOROAMPHETAMINE [Concomitant]
     Active Substance: 4-FLUOROAMPHETAMINE
     Route: 065
  5. METHOXETAMINE [Concomitant]
     Active Substance: METHOXETAMINE
     Route: 065
  6. ALPHA?PVP [Concomitant]
     Active Substance: .ALPHA.-PYRROLIDINOPENTIOPHENONE
     Route: 065
  7. MDPV [Concomitant]
     Active Substance: METHYLENEDIOXYPYROVALERONE HYDROCHLORIDE
     Route: 065
  8. DIPHENIDINE [Suspect]
     Active Substance: DIPHENIDINE
     Route: 045

REACTIONS (4)
  - Loss of consciousness [Recovered/Resolved]
  - Metabolic acidosis [Unknown]
  - Toxicity to various agents [Recovering/Resolving]
  - Drug interaction [Unknown]
